FAERS Safety Report 24623157 (Version 1)
Quarter: 2024Q4

REPORT INFORMATION
  Report Type: Spontaneous
  Country: US (occurrence: US)
  Receive Date: 20241115
  Receipt Date: 20241115
  Transmission Date: 20250115
  Serious: No
  Sender: AMGEN
  Company Number: US-AMGEN-USASP2024222794

PATIENT
  Age: 68 Year
  Sex: Female

DRUGS (3)
  1. REPATHA [Suspect]
     Active Substance: EVOLOCUMAB
     Indication: Blood cholesterol increased
     Dosage: 140 MILLIGRAM, Q2WK
     Route: 065
     Dates: start: 20241011
  2. REPATHA [Suspect]
     Active Substance: EVOLOCUMAB
     Indication: Blood triglycerides increased
  3. REPATHA [Suspect]
     Active Substance: EVOLOCUMAB
     Indication: Arterial occlusive disease

REACTIONS (9)
  - Hypoaesthesia oral [Recovered/Resolved]
  - Lip erythema [Recovered/Resolved]
  - Dysgeusia [Recovered/Resolved]
  - Malaise [Unknown]
  - Feeling hot [Unknown]
  - Muscle spasms [Unknown]
  - Fatigue [Unknown]
  - Injection site pain [Recovered/Resolved]
  - Urticaria [Not Recovered/Not Resolved]

NARRATIVE: CASE EVENT DATE: 20241015
